FAERS Safety Report 8776490 (Version 1)
Quarter: 2012Q4

REPORT INFORMATION
  Report Type: 
  Country: US (occurrence: US)
  Receive Date: 20120910
  Receipt Date: 20120910
  Transmission Date: 20130627
  Serious: Yes (Life-Threatening, Hospitalization)
  Sender: FDA-Public Use
  Company Number: US-ASTRAZENECA-2012SE70144

PATIENT
  Age: 43 Year
  Sex: Male
  Weight: 86.2 kg

DRUGS (7)
  1. NEXIUM [Suspect]
     Indication: GASTROOESOPHAGEAL REFLUX DISEASE
     Route: 048
     Dates: start: 2002
  2. SEROQUEL XR [Suspect]
     Indication: BIPOLAR DISORDER
     Route: 048
  3. SEROQUEL XR [Suspect]
     Indication: SLEEP DISORDER
     Route: 048
  4. SEROQUEL XR [Suspect]
     Indication: BIPOLAR DISORDER
     Route: 048
     Dates: start: 2010
  5. SEROQUEL XR [Suspect]
     Indication: SLEEP DISORDER
     Route: 048
     Dates: start: 2010
  6. ADDERALL [Concomitant]
  7. ANOTHER MEDICATION [Concomitant]

REACTIONS (3)
  - Gun shot wound [Unknown]
  - Drug dose omission [Unknown]
  - Somnolence [Unknown]
